FAERS Safety Report 17836825 (Version 2)
Quarter: 2020Q2

REPORT INFORMATION
  Report Type: Spontaneous
  Country: FR (occurrence: FR)
  Receive Date: 20200529
  Receipt Date: 20200610
  Transmission Date: 20200714
  Serious: Yes (Hospitalization, Other)
  Sender: FDA-Public Use
  Company Number: FR-ACCORD-183482

PATIENT
  Age: 86 Year
  Sex: Male
  Weight: 77 kg

DRUGS (18)
  1. ALLOPURINOL. [Concomitant]
     Active Substance: ALLOPURINOL
     Indication: GOUT
     Dates: start: 20150127
  2. LASILIX [Suspect]
     Active Substance: FUROSEMIDE
     Indication: CARDIAC FAILURE
     Route: 002
     Dates: start: 20140130, end: 20191031
  3. CETIRIZINE [Concomitant]
     Active Substance: CETIRIZINE HYDROCHLORIDE
     Indication: PRURITUS
     Dates: start: 20190822
  4. TAFAMIDIS [Suspect]
     Active Substance: TAFAMIDIS MEGLUMINE
     Indication: CARDIAC AMYLOIDOSIS
     Route: 048
     Dates: start: 20191017
  5. ALFUZOSIN [Concomitant]
     Active Substance: ALFUZOSIN
     Indication: PROSTATIC ADENOMA
     Route: 048
     Dates: start: 20190822, end: 201911
  6. ALFUZOSIN [Concomitant]
     Active Substance: ALFUZOSIN
     Indication: PROSTATIC ADENOMA
     Dosage: LP (UNSPECIFIED)
     Route: 048
     Dates: start: 201911
  7. FUROSEMIDE. [Suspect]
     Active Substance: FUROSEMIDE
     Indication: CARDIAC FAILURE
     Route: 002
     Dates: start: 20140130, end: 20191031
  8. FUROSEMIDE. [Suspect]
     Active Substance: FUROSEMIDE
     Indication: CARDIAC FAILURE
     Route: 002
     Dates: start: 201911, end: 201911
  9. BISOPROLOL FUMARATE. [Suspect]
     Active Substance: BISOPROLOL FUMARATE
     Indication: ATRIAL FIBRILLATION
     Dosage: DOSE DECREASED
     Route: 002
     Dates: start: 201911
  10. BISOPROLOL [Suspect]
     Active Substance: BISOPROLOL
     Indication: ATRIAL FIBRILLATION
     Route: 002
     Dates: start: 20191113, end: 201911
  11. WARFARIN SODIUM. [Concomitant]
     Active Substance: WARFARIN SODIUM
     Indication: ATRIAL FIBRILLATION
     Route: 048
     Dates: start: 201911
  12. BISOPROLOL FUMARATE. [Suspect]
     Active Substance: BISOPROLOL FUMARATE
     Indication: ATRIAL FIBRILLATION
     Route: 002
     Dates: start: 20130211, end: 20191031
  13. TAFAMIDIS [Concomitant]
     Active Substance: TAFAMIDIS MEGLUMINE
     Dosage: UNK
  14. FUROSEMIDE. [Suspect]
     Active Substance: FUROSEMIDE
     Indication: CARDIAC FAILURE
     Dosage: DOSE DECREASED
     Route: 002
     Dates: start: 20191113, end: 201911
  15. FUROSEMIDE. [Suspect]
     Active Substance: FUROSEMIDE
     Indication: CARDIAC FAILURE
     Dosage: DOSE INCREASED: 500 MG 1/2 PILL/DAY, 40 MG 1 PILL/DAY
     Route: 002
     Dates: start: 201911
  16. LASILIX [Suspect]
     Active Substance: FUROSEMIDE
     Indication: CARDIAC FAILURE
     Dosage: DOSE INCREASED: 500 MG 1/2 PILL/DAY, 40 MG 1 PILL/DAY
     Route: 002
     Dates: start: 201911
  17. COUMADIN [Concomitant]
     Active Substance: WARFARIN SODIUM
     Indication: ATRIAL FIBRILLATION
     Route: 048
     Dates: start: 20130211, end: 201911
  18. LASILIX [Suspect]
     Active Substance: FUROSEMIDE
     Indication: CARDIAC FAILURE
     Dosage: DOSE DECREASED
     Route: 002
     Dates: start: 20191113, end: 201911

REACTIONS (1)
  - Cardiac failure [Recovered/Resolved]

NARRATIVE: CASE EVENT DATE: 20191116
